FAERS Safety Report 18313826 (Version 1)
Quarter: 2020Q3

REPORT INFORMATION
  Report Type: Spontaneous
  Country: US (occurrence: US)
  Receive Date: 20200925
  Receipt Date: 20200925
  Transmission Date: 20201103
  Serious: Yes (Hospitalization, Disabling, Other)
  Sender: FDA-Public Use
  Company Number: US-JNJFOC-20200932768

PATIENT
  Age: 68 Year
  Sex: Female

DRUGS (1)
  1. INVOKANA [Suspect]
     Active Substance: CANAGLIFLOZIN
     Indication: TYPE 2 DIABETES MELLITUS
     Route: 048

REACTIONS (8)
  - Sepsis [Unknown]
  - Gas gangrene [Unknown]
  - Abnormal faeces [Recovered/Resolved]
  - Malaise [Recovered/Resolved]
  - Osteomyelitis chronic [Unknown]
  - Constipation [Recovered/Resolved]
  - Diabetic foot infection [Unknown]
  - Leg amputation [Unknown]

NARRATIVE: CASE EVENT DATE: 201411
